FAERS Safety Report 5021847-7 (Version None)
Quarter: 2006Q2

REPORT INFORMATION
  Report Type: 
  Country: None (occurrence: None)
  Receive Date: 20060609
  Receipt Date: 20060602
  Transmission Date: 20061013
  Serious: Yes (Hospitalization)
  Sender: FDA-Public Use
  Company Number: HU-JNJFOC-20060504182

PATIENT
  Sex: Male

DRUGS (1)
  1. REMICADE [Suspect]
     Indication: CROHN'S DISEASE
     Route: 042

REACTIONS (6)
  - ABSCESS [None]
  - HYDROCEPHALUS [None]
  - MENINGEAL DISORDER [None]
  - MENINGITIS BACTERIAL [None]
  - PNEUMOTHORAX [None]
  - POST PROCEDURAL COMPLICATION [None]
